FAERS Safety Report 9071617 (Version 3)
Quarter: 2013Q3

REPORT INFORMATION
  Report Type: Spontaneous
  Country: US (occurrence: US)
  Receive Date: 20130129
  Receipt Date: 20130716
  Transmission Date: 20140515
  Serious: Yes (Hospitalization, Other)
  Sender: FDA-Public Use
  Company Number: US-BAXTER-2013BAX003367

PATIENT
  Age: 46 Year
  Sex: Male

DRUGS (3)
  1. DIANEAL LOW CALCIUM [Suspect]
     Indication: PERITONEAL DIALYSIS
     Route: 033
     Dates: start: 20121031
  2. DIANEAL PD2 [Suspect]
     Indication: PERITONEAL DIALYSIS
     Route: 033
     Dates: start: 20121031
  3. DIANEAL PD2 [Suspect]
     Indication: PERITONEAL DIALYSIS
     Route: 033
     Dates: start: 20121031

REACTIONS (5)
  - Gastrointestinal haemorrhage [Recovering/Resolving]
  - Gastritis erosive [Unknown]
  - Blood glucose increased [Recovering/Resolving]
  - Orthostatic hypotension [Unknown]
  - Hypertension [Recovering/Resolving]
